FAERS Safety Report 19064799 (Version 1)
Quarter: 2021Q1

REPORT INFORMATION
  Report Type: Spontaneous
  Country: CN (occurrence: CN)
  Receive Date: 20210326
  Receipt Date: 20210326
  Transmission Date: 20210420
  Serious: Yes (Life-Threatening)
  Sender: FDA-Public Use
  Company Number: CN-PURDUE-USA-2021-0237600

PATIENT
  Age: 62 Year
  Sex: Male
  Weight: 60 kg

DRUGS (2)
  1. MS CONTIN [Suspect]
     Active Substance: MORPHINE SULFATE
     Indication: NECK PAIN
  2. MS CONTIN [Suspect]
     Active Substance: MORPHINE SULFATE
     Indication: ARTHRALGIA
     Dosage: 120 MG, BID
     Route: 048
     Dates: start: 20201226, end: 20201226

REACTIONS (4)
  - Confusional state [Recovering/Resolving]
  - Restlessness [Recovering/Resolving]
  - Miosis [Recovering/Resolving]
  - Respiratory rate decreased [Recovering/Resolving]

NARRATIVE: CASE EVENT DATE: 20201226
